FAERS Safety Report 5629821-4 (Version None)
Quarter: 2008Q1

REPORT INFORMATION
  Report Type: 
  Country: None (occurrence: None)
  Receive Date: 20080218
  Receipt Date: 20080207
  Transmission Date: 20080703
  Serious: Yes (Other)
  Sender: FDA-Public Use
  Company Number: PHHY2008AT01504

PATIENT

DRUGS (1)
  1. ZOMETA [Suspect]
     Indication: OSTEOGENESIS IMPERFECTA

REACTIONS (1)
  - NEPHROLITHIASIS [None]
